FAERS Safety Report 10611069 (Version 4)
Quarter: 2015Q1

REPORT INFORMATION
  Report Type: Spontaneous
  Country: US (occurrence: US)
  Receive Date: 20141126
  Receipt Date: 20150319
  Transmission Date: 20150720
  Serious: Yes (Death, Hospitalization, Disabling, Other)
  Sender: FDA-Public Use
  Company Number: US-009507513-1411USA011813

PATIENT
  Sex: Female
  Weight: 65.79 kg

DRUGS (3)
  1. JANUVIA [Suspect]
     Active Substance: SITAGLIPTIN PHOSPHATE
     Indication: TYPE 2 DIABETES MELLITUS
     Dosage: 100 MG, QD
     Route: 048
     Dates: start: 20080226, end: 20090302
  2. BYETTA [Suspect]
     Active Substance: EXENATIDE
     Indication: TYPE 2 DIABETES MELLITUS
     Dosage: 10 MICROGRAM, QD
     Route: 058
     Dates: start: 20080226, end: 20120929
  3. JANUVIA [Suspect]
     Active Substance: SITAGLIPTIN PHOSPHATE
     Dosage: 100 MG, BID
     Route: 048
     Dates: start: 20080827, end: 20090302

REACTIONS (27)
  - Non-alcoholic steatohepatitis [Unknown]
  - Choledochoenterostomy [Unknown]
  - Paracentesis [Unknown]
  - Blindness [Not Recovered/Not Resolved]
  - Diabetic retinopathy [Unknown]
  - Stasis dermatitis [Unknown]
  - Hypokalaemia [Unknown]
  - Hypoglycaemia [Unknown]
  - Paracentesis [Unknown]
  - Anaemia [Recovering/Resolving]
  - Coeliac disease [Unknown]
  - Dry skin [Unknown]
  - Pancreatic carcinoma metastatic [Fatal]
  - Metastases to lung [Unknown]
  - Carpal tunnel syndrome [Unknown]
  - Arteriosclerosis coronary artery [Unknown]
  - Tumour associated fever [Recovered/Resolved]
  - Diabetes mellitus inadequate control [Unknown]
  - Large intestine polyp [Unknown]
  - Normochromic normocytic anaemia [Unknown]
  - Dehydration [Recovering/Resolving]
  - Inappropriate schedule of drug administration [Unknown]
  - Acute kidney injury [Unknown]
  - Rheumatoid arthritis [Unknown]
  - Diabetic neuropathy [Unknown]
  - Biopsy lung [Unknown]
  - Skin ulcer [Recovering/Resolving]

NARRATIVE: CASE EVENT DATE: 200909
